FAERS Safety Report 24174974 (Version 2)
Quarter: 2024Q3

REPORT INFORMATION
  Report Type: Spontaneous
  Country: GB (occurrence: GB)
  Receive Date: 20240805
  Receipt Date: 20240826
  Transmission Date: 20241016
  Serious: Yes (Hospitalization, Other)
  Sender: MYLAN
  Company Number: GB-MYLANLABS-2024M1070137

PATIENT
  Sex: Male

DRUGS (2)
  1. CLOZARIL [Suspect]
     Active Substance: CLOZAPINE
     Indication: Schizophrenia
     Dosage: UNK
     Route: 048
     Dates: start: 20120117
  2. CLOZARIL [Suspect]
     Active Substance: CLOZAPINE
     Dosage: UNK (FULL DOSE OF MEDICATION AND CONTINUE AS SUCH FOR ABOUT 36 HOURS)
     Route: 048

REACTIONS (2)
  - Neuroleptic malignant syndrome [Unknown]
  - Intentional product misuse [Unknown]
